FAERS Safety Report 4602730-5 (Version None)
Quarter: 2005Q1

REPORT INFORMATION
  Report Type: 
  Country: None (occurrence: None)
  Receive Date: 20050307
  Receipt Date: 20050228
  Transmission Date: 20050727
  Serious: Yes (Death)
  Sender: FDA-Public Use
  Company Number: 2005AC00369

PATIENT
  Age: 43 Year
  Sex: Female

DRUGS (5)
  1. QUETIAPINE FUMARATE [Suspect]
     Dosage: 100 MG BID PO
     Route: 048
  2. FLUOXETINE [Suspect]
  3. DIVALPROEX SODIUM [Suspect]
  4. CLONAZEPAM [Suspect]
  5. NALTREXONE [Suspect]
     Indication: ALCOHOLISM

REACTIONS (5)
  - BILE DUCT OBSTRUCTION [None]
  - CONDITION AGGRAVATED [None]
  - HEPATIC FAILURE [None]
  - HEPATITIS [None]
  - PULMONARY EMBOLISM [None]
